FAERS Safety Report 11162134 (Version 2)
Quarter: 2015Q2

REPORT INFORMATION
  Report Type: Spontaneous
  Country: US (occurrence: None)
  Receive Date: 20150602
  Receipt Date: 20150612
  Transmission Date: 20150821
  Serious: Yes (Other)
  Sender: FDA-Public Use
  Company Number: 2015EXPUS00352

PATIENT
  Age: 40 Year
  Sex: Female

DRUGS (4)
  1. EXPAREL [Suspect]
     Active Substance: BUPIVACAINE
     Indication: POSTOPERATIVE ANALGESIA
     Route: 050
     Dates: start: 20150518, end: 20150518
  2. FENTANYL (FENTANYL CITRATE) [Concomitant]
     Active Substance: FENTANYL CITRATE
  3. DILAUDID [Concomitant]
     Active Substance: HYDROMORPHONE HYDROCHLORIDE
  4. BUPIVACAINE HYDROCHLORIDE (BUPIVACAINE HYDROCHLORIDE) [Concomitant]

REACTIONS (2)
  - Respiratory arrest [None]
  - Pain [None]

NARRATIVE: CASE EVENT DATE: 20150518
